FAERS Safety Report 7028747-1 (Version None)
Quarter: 2010Q3

REPORT INFORMATION
  Report Type: 
  Country: None (occurrence: None)
  Receive Date: 20100920
  Receipt Date: 20100422
  Transmission Date: 20110219
  Serious: Yes (Death, Hospitalization, Other)
  Sender: FDA-Public Use
  Company Number: 2009314332

PATIENT
  Age: 43 Year
  Sex: Male

DRUGS (5)
  1. DILANTIN-125 [Suspect]
     Indication: CONVULSION PROPHYLAXIS
     Dosage: 100 MG, 3X/DAY, ORAL; 100 MG, 2X/DAY
     Route: 048
     Dates: end: 20030215
  2. DILANTIN-125 [Suspect]
     Indication: CONVULSION PROPHYLAXIS
     Dosage: 100 MG, 3X/DAY, ORAL; 100 MG, 2X/DAY
     Route: 048
     Dates: start: 20030128
  3. XANAX [Concomitant]
  4. ZANTAC [Concomitant]
  5. VICODIN [Concomitant]

REACTIONS (1)
  - STEVENS-JOHNSON SYNDROME [None]
